FAERS Safety Report 8342925-0 (Version None)
Quarter: 2012Q2

REPORT INFORMATION
  Report Type: 
  Country: None (occurrence: None)
  Receive Date: 20120508
  Receipt Date: 20120426
  Transmission Date: 20120825
  Serious: Yes (Hospitalization, Other)
  Sender: FDA-Public Use
  Company Number: US-JNJFOC-20120413075

PATIENT
  Sex: Female
  Weight: 63.5 kg

DRUGS (6)
  1. ENTOCORT EC [Concomitant]
     Indication: CROHN'S DISEASE
  2. REMICADE [Suspect]
     Route: 042
     Dates: start: 20120224, end: 20120224
  3. REMICADE [Suspect]
     Indication: CROHN'S DISEASE
     Route: 042
     Dates: start: 20120209
  4. HUMIRA [Suspect]
     Indication: CROHN'S DISEASE
     Dates: start: 20070101, end: 20111101
  5. IMURAN [Concomitant]
     Indication: CROHN'S DISEASE
  6. REMICADE [Suspect]
     Route: 042
     Dates: start: 20060101, end: 20060101

REACTIONS (7)
  - POST-TRAUMATIC STRESS DISORDER [None]
  - WOUND DEHISCENCE [None]
  - INFLUENZA LIKE ILLNESS [None]
  - HYPERSENSITIVITY [None]
  - FISTULA [None]
  - WEIGHT INCREASED [None]
  - INTESTINAL STENOSIS [None]
